FAERS Safety Report 16901365 (Version 3)
Quarter: 2020Q1

REPORT INFORMATION
  Report Type: Report from Study
  Country: None (occurrence: US)
  Receive Date: 20191009
  Receipt Date: 20200107
  Transmission Date: 20200409
  Serious: Yes (Other)
  Sender: FDA-Public Use
  Company Number: US-ABBVIE-19K-163-2951081-00

PATIENT
  Age: 17 Year
  Sex: Male

DRUGS (2)
  1. HUMIRA [Suspect]
     Active Substance: ADALIMUMAB
     Indication: CROHN^S DISEASE
     Dosage: CITRATE FREE
     Route: 058
     Dates: start: 20190613, end: 2019
  2. HUMIRA [Suspect]
     Active Substance: ADALIMUMAB
     Dosage: CITRATE FREE
     Route: 058
     Dates: start: 2019

REACTIONS (5)
  - Abdominal abscess [Unknown]
  - Gastrointestinal obstruction [Not Recovered/Not Resolved]
  - Ileostomy [Unknown]
  - Loss of personal independence in daily activities [Unknown]
  - Scar [Unknown]

NARRATIVE: CASE EVENT DATE: 2019
